FAERS Safety Report 13309534 (Version 2)
Quarter: 2017Q1

REPORT INFORMATION
  Report Type: Report from Study
  Country: None (occurrence: RO)
  Receive Date: 20170309
  Receipt Date: 20170313
  Transmission Date: 20170428
  Serious: Yes (Hospitalization)
  Sender: FDA-Public Use
  Company Number: RO-ABBVIE-17K-135-1895877-00

PATIENT
  Sex: Female

DRUGS (4)
  1. ANXIAR [Concomitant]
     Indication: INSOMNIA
     Dosage: 0-0-1
     Route: 048
     Dates: start: 2012
  2. ASPENTER [Concomitant]
     Active Substance: ASPIRIN
     Indication: CORONARY ARTERY DISEASE
     Dosage: 0-1-0
     Route: 048
     Dates: start: 2012
  3. ENALAPRIL [Concomitant]
     Active Substance: ENALAPRIL
     Indication: HYPERTENSION
     Dosage: 1-0-1
     Route: 048
     Dates: start: 2012
  4. DUODOPA [Suspect]
     Active Substance: CARBIDOPA\LEVODOPA
     Indication: PARKINSON^S DISEASE
     Dosage: 6ML/4.2ML/1.7ML/24 H
     Route: 050
     Dates: start: 20120530, end: 20170303

REACTIONS (6)
  - Hallucination, auditory [Not Recovered/Not Resolved]
  - Cognitive disorder [Not Recovered/Not Resolved]
  - Anxiety disorder [Not Recovered/Not Resolved]
  - Depression [Not Recovered/Not Resolved]
  - Intentional medical device removal by patient [Unknown]
  - Hallucination, visual [Not Recovered/Not Resolved]
